FAERS Safety Report 5982782-0 (Version None)
Quarter: 2008Q4

REPORT INFORMATION
  Report Type: 
  Country: None (occurrence: None)
  Receive Date: 20081208
  Receipt Date: 20081124
  Transmission Date: 20090506
  Serious: Yes (Hospitalization, Other)
  Sender: FDA-Public Use
  Company Number: US-ROCHE-552213

PATIENT
  Sex: Female
  Weight: 99.8 kg

DRUGS (2)
  1. ACCUTANE [Suspect]
     Indication: ACNE
     Route: 065
     Dates: start: 20020103, end: 20020512
  2. ACCUTANE [Suspect]
     Dosage: PATIENT TOOK 40 MG 2 EVEN DAYS AND 1 ODD DAYS.
     Route: 065
     Dates: start: 20030327, end: 20030702

REACTIONS (8)
  - CHOLELITHIASIS [None]
  - COMPLETED SUICIDE [None]
  - CROHN'S DISEASE [None]
  - DEPRESSION [None]
  - HAEMATURIA [None]
  - INFECTIOUS MONONUCLEOSIS [None]
  - INFLAMMATORY BOWEL DISEASE [None]
  - IRRITABLE BOWEL SYNDROME [None]
